FAERS Safety Report 19181155 (Version 1)
Quarter: 2021Q2

REPORT INFORMATION
  Report Type: Spontaneous
  Country: NL (occurrence: NL)
  Receive Date: 20210426
  Receipt Date: 20210426
  Transmission Date: 20210717
  Serious: Yes (Other)
  Sender: FDA-Public Use
  Company Number: NL-ACCORD-223354

PATIENT
  Age: 65 Year
  Sex: Male
  Weight: 82 kg

DRUGS (5)
  1. EZETIMIBE. [Concomitant]
     Active Substance: EZETIMIBE
     Dosage: TABLET, 10 MG (MILLIGRAM)
  2. ACETYLSALICYLIC ACID [Concomitant]
     Active Substance: ASPIRIN
     Dosage: TABLET, 80 MG (MILLIGRAM)
  3. METOPROLOL. [Concomitant]
     Active Substance: METOPROLOL
     Dosage: MODIFIED?RELEASE TABLET, 25 MG (MILLIGRAM)
  4. ATORVASTATIN/ATORVASTATIN CALCIUM [Suspect]
     Active Substance: ATORVASTATIN CALCIUM
     Indication: HYPERCHOLESTEROLAEMIA
     Dosage: 1 X DAILY
     Dates: start: 201502, end: 20200917
  5. RAMIPRIL. [Concomitant]
     Active Substance: RAMIPRIL
     Dosage: CAPSULE, 5 MG (MILLIGRAM)

REACTIONS (5)
  - Balance disorder [Unknown]
  - Delirium [Recovered/Resolved]
  - Amnesia [Unknown]
  - Chills [Unknown]
  - Malaise [Recovered/Resolved]

NARRATIVE: CASE EVENT DATE: 20181018
